FAERS Safety Report 11796956 (Version 1)
Quarter: 2015Q4

REPORT INFORMATION
  Report Type: Spontaneous
  Country: US (occurrence: None)
  Receive Date: 20151202
  Receipt Date: 20151202
  Transmission Date: 20160305
  Serious: Yes (Hospitalization)
  Sender: FDA-Public Use
  Company Number: None

PATIENT
  Age: 47 Year
  Sex: Male
  Weight: 78 kg

DRUGS (1)
  1. CANAGLIFLOZIN 100 MG JANSSEN [Suspect]
     Active Substance: CANAGLIFLOZIN
     Indication: TYPE 2 DIABETES MELLITUS
     Dosage: 1 PILL  QD  ORAL
     Route: 048

REACTIONS (5)
  - Metabolic acidosis [None]
  - Diabetic ketoacidosis [None]
  - Abdominal pain [None]
  - Acute coronary syndrome [None]
  - Nausea [None]

NARRATIVE: CASE EVENT DATE: 20151127
